FAERS Safety Report 21695377 (Version 1)
Quarter: 2022Q4

REPORT INFORMATION
  Report Type: Spontaneous
  Country: SE (occurrence: SE)
  Receive Date: 20221207
  Receipt Date: 20221207
  Transmission Date: 20230113
  Serious: Yes (Hospitalization)
  Sender: FDA-Public Use
  Company Number: None

PATIENT
  Age: 24 Year
  Sex: Female

DRUGS (1)
  1. OXYCODONE HYDROCHLORIDE [Suspect]
     Active Substance: OXYCODONE HYDROCHLORIDE
     Indication: Haemorrhoid operation
     Dosage: 3 TABLETTER PER DYGN/ 3 TABLETS PER DAY
     Route: 048
     Dates: start: 20220825, end: 20220917

REACTIONS (6)
  - Mood swings [Not Recovered/Not Resolved]
  - Delusion [Recovering/Resolving]
  - Nausea [Recovered/Resolved]
  - Bipolar disorder [Recovering/Resolving]
  - Dizziness [Recovering/Resolving]
  - Speech disorder [Recovering/Resolving]
